FAERS Safety Report 4635395-7 (Version None)
Quarter: 2005Q2

REPORT INFORMATION
  Report Type: 
  Country: None (occurrence: None)
  Receive Date: 20050414
  Receipt Date: 20050401
  Transmission Date: 20051028
  Serious: Yes (Hospitalization)
  Sender: FDA-Public Use
  Company Number: 2005053027

PATIENT
  Age: 27 Year
  Sex: Male
  Weight: 62 kg

DRUGS (3)
  1. AZITHROMYCIN [Suspect]
     Indication: UPPER RESPIRATORY TRACT INFECTION
     Dosage: 500 MG (500 MG, OD), ORAL
     Route: 048
     Dates: start: 20050227, end: 20050302
  2. DECOLFET (PSEUDOEPHEDRINE, TRIPROLIDINE) [Suspect]
     Indication: INFLUENZA
     Dosage: 180MG  / 7.5MG (TID), ORAL
     Route: 048
     Dates: start: 20050310, end: 20050316
  3. LINCOMYCIN (LINCOMYCIN) [Suspect]
     Indication: UPPER RESPIRATORY TRACT INFECTION
     Dosage: 300 MG (300 MG, QD), INTRAMUSCULAR
     Route: 030
     Dates: start: 20050310, end: 20050316

REACTIONS (3)
  - ABDOMINAL PAIN UPPER [None]
  - GASTRITIS [None]
  - GENERAL PHYSICAL HEALTH DETERIORATION [None]
